FAERS Safety Report 21700618 (Version 1)
Quarter: 2022Q4

REPORT INFORMATION
  Report Type: Report from Study
  Country: US (occurrence: US)
  Receive Date: 20221208
  Receipt Date: 20221208
  Transmission Date: 20230113
  Serious: No
  Sender: FDA-Public Use
  Company Number: US-ABBVIE-4179225

PATIENT
  Sex: Female

DRUGS (1)
  1. HUMIRA [Suspect]
     Active Substance: ADALIMUMAB
     Indication: Hidradenitis
     Dosage: FORM STRENGTH: 40 MILLIGRAM?CF
     Route: 058

REACTIONS (7)
  - Sinusitis [Unknown]
  - Ear pain [Unknown]
  - Nasal congestion [Unknown]
  - Fatigue [Unknown]
  - Oropharyngeal pain [Unknown]
  - Headache [Unknown]
  - Hypersomnia [Unknown]
